FAERS Safety Report 16310321 (Version 1)
Quarter: 2019Q2

REPORT INFORMATION
  Report Type: Spontaneous
  Country: US (occurrence: US)
  Receive Date: 20190513
  Receipt Date: 20190513
  Transmission Date: 20190711
  Serious: No
  Sender: FDA-Public Use
  Company Number: None

PATIENT
  Age: 34 Year
  Sex: Female

DRUGS (4)
  1. SYMDEKO [Suspect]
     Active Substance: IVACAFTOR\TEZACAFTOR
     Indication: CYSTIC FIBROSIS
     Route: 048
     Dates: start: 20190326
  2. NORCO 5-325MG [Concomitant]
  3. LEVOFLOXACIN 750 MG [Concomitant]
     Active Substance: LEVOFLOXACIN
  4. CAYSTON [Concomitant]
     Active Substance: AZTREONAM

REACTIONS (2)
  - Rib fracture [None]
  - Fall [None]

NARRATIVE: CASE EVENT DATE: 20190510
